FAERS Safety Report 5050034-1 (Version None)
Quarter: 2006Q2

REPORT INFORMATION
  Report Type: 
  Country: None (occurrence: None)
  Receive Date: 20060601
  Receipt Date: 20060216
  Transmission Date: 20061013
  Serious: No
  Sender: FDA-Public Use
  Company Number: US200602003524

PATIENT
  Age: 50 Year
  Sex: Male

DRUGS (6)
  1. CYMBALTA [Suspect]
     Indication: DEPRESSION
     Dosage: 60 MG
     Dates: start: 20050101
  2. WELLBUTRIN (BURPOPION HYDROCHLORIDE) [Concomitant]
  3. FLOMAX [Concomitant]
  4. RITALIN [Concomitant]
  5. AMBIEN [Concomitant]
  6. CLONAZEPAM [Concomitant]

REACTIONS (1)
  - COELIAC DISEASE [None]
